FAERS Safety Report 6170096-8 (Version None)
Quarter: 2009Q2

REPORT INFORMATION
  Report Type: 
  Country: None (occurrence: None)
  Receive Date: 20090428
  Receipt Date: 20090417
  Transmission Date: 20091009
  Serious: Yes (Other)
  Sender: FDA-Public Use
  Company Number: B0564329A

PATIENT
  Sex: Female

DRUGS (2)
  1. TYVERB [Suspect]
     Indication: DRUG USE FOR UNKNOWN INDICATION
     Dosage: 1250MG PER DAY
     Route: 065
  2. TYVERB [Suspect]
     Dosage: 1000MG PER DAY
     Route: 065
     Dates: start: 20090313

REACTIONS (7)
  - ABDOMINAL PAIN [None]
  - ALANINE AMINOTRANSFERASE INCREASED [None]
  - C-REACTIVE PROTEIN INCREASED [None]
  - DIARRHOEA [None]
  - HEPATIC ENZYME INCREASED [None]
  - NAUSEA [None]
  - WEIGHT DECREASED [None]
